FAERS Safety Report 23036598 (Version 1)
Quarter: 2023Q4

REPORT INFORMATION
  Report Type: Spontaneous
  Country: US (occurrence: US)
  Receive Date: 20231006
  Receipt Date: 20231006
  Transmission Date: 20240110
  Serious: No
  Sender: FDA-Public Use
  Company Number: US-TOLMAR, INC.-23US043396

PATIENT
  Age: 23 Year
  Sex: Male

DRUGS (2)
  1. KETOCONAZOLE [Suspect]
     Active Substance: KETOCONAZOLE
     Indication: Dandruff
     Dosage: UNK, 2/WEEK
     Route: 003
  2. VITAMINS NOS [Concomitant]
     Active Substance: VITAMINS
     Indication: Product used for unknown indication
     Dosage: UNK, QD

REACTIONS (1)
  - Skin irritation [Recovered/Resolved]
